FAERS Safety Report 11071832 (Version 2)
Quarter: 2015Q2

REPORT INFORMATION
  Report Type: Other
  Country: CA (occurrence: CA)
  Receive Date: 20150428
  Receipt Date: 20150513
  Transmission Date: 20150821
  Serious: Yes (Other)
  Sender: FDA-Public Use
  Company Number: CA-APOTEX-2015AP008234

PATIENT
  Age: 41 Year
  Sex: Female

DRUGS (1)
  1. APO-METFORMIN ER [Suspect]
     Active Substance: METFORMIN HYDROCHLORIDE
     Indication: BREAST CANCER
     Dosage: 1700 MG, DAILY
     Route: 048
     Dates: start: 20120223, end: 20141014

REACTIONS (2)
  - Abortion spontaneous [Unknown]
  - Exposure during pregnancy [Unknown]

NARRATIVE: CASE EVENT DATE: 20141015
